FAERS Safety Report 20146720 (Version 1)
Quarter: 2021Q4

REPORT INFORMATION
  Report Type: Spontaneous
  Country: LB (occurrence: LB)
  Receive Date: 20211203
  Receipt Date: 20211203
  Transmission Date: 20220303
  Serious: Yes (Other)
  Sender: FDA-Public Use
  Company Number: LB-NOVARTISPH-NVSC2021LB056626

PATIENT

DRUGS (8)
  1. RITUXIMAB [Suspect]
     Active Substance: RITUXIMAB
     Indication: High-grade B-cell lymphoma
     Dosage: 375 MG/M2 ON DAY 2, (FIRST-LINE MR-ACVBP REGIMEN, 4 CYCLES)
     Route: 065
     Dates: start: 201410, end: 201910
  2. DOXORUBICIN [Suspect]
     Active Substance: DOXORUBICIN
     Indication: High-grade B-cell lymphoma
     Dosage: 75 MG/M2 ON DAY1, (FIRST-LINE MR-ACVBP REGIMEN, 4 CYCLES)
     Route: 065
     Dates: start: 201410, end: 201910
  3. METHOTREXATE [Suspect]
     Active Substance: METHOTREXATE
     Indication: Nervous system disorder
     Dosage: 15 MG ON DAY 1 (4 INJECTIONS)
     Route: 037
  4. METHOTREXATE [Suspect]
     Active Substance: METHOTREXATE
     Indication: Prophylaxis
  5. CYCLOPHOSPHAMIDE [Suspect]
     Active Substance: CYCLOPHOSPHAMIDE
     Indication: High-grade B-cell lymphoma
     Dosage: 1200 MG/M2 ON DAY 1 WITH MESNA, (FIRST-LINE MR-ACVBP REGIMEN, 4 CYCLES)
     Route: 065
     Dates: start: 201410, end: 201910
  6. VINCRISTINE [Suspect]
     Active Substance: VINCRISTINE
     Indication: High-grade B-cell lymphoma
     Dosage: 2 MG,  ON DAY 1 AND 5 (FIRST-LINE MR-ACVBP REGIMEN, 4 CYCLES)
     Route: 042
     Dates: start: 201410, end: 201910
  7. BLEOMYCIN [Suspect]
     Active Substance: BLEOMYCIN SULFATE
     Indication: High-grade B-cell lymphoma
     Dosage: 10 MG ON DAY 1 AND 5 (FIRST-LINE MR-ACVBP REGIMEN, 4 CYCLES)
     Route: 065
     Dates: start: 201410, end: 201910
  8. PREDNISONE [Suspect]
     Active Substance: PREDNISONE
     Indication: High-grade B-cell lymphoma
     Dosage: 60 MG/M2 ON DAY 1 AND 5 (FIRST-LINE MR-ACVBP REGIMEN, 4 CYCLES)
     Route: 065
     Dates: start: 201410, end: 201910

REACTIONS (2)
  - Neuropathy peripheral [Unknown]
  - Product use in unapproved indication [Unknown]
